FAERS Safety Report 23577946 (Version 1)
Quarter: 2024Q1

REPORT INFORMATION
  Report Type: Spontaneous
  Country: GB (occurrence: GB)
  Receive Date: 20240228
  Receipt Date: 20240228
  Transmission Date: 20240409
  Serious: Yes (Other)
  Sender: FDA-Public Use
  Company Number: None

PATIENT
  Age: 55 Year
  Sex: Female

DRUGS (10)
  1. NOVORAPID [Suspect]
     Active Substance: INSULIN ASPART
     Indication: Type 2 diabetes mellitus
     Dosage: 100UNITS/ML SOLUTION FOR INJECTION 3ML PRE-FILLED DISPOSABLE DEVICES
  2. FIASP [Suspect]
     Active Substance: INSULIN ASPART
     Indication: Type 2 diabetes mellitus
     Dosage: INSULIN LISPRO 100UNITS/ML SOLUTION FOR INJECTION 3ML PRE-FILLED DISPOSABLE DEVICES
  3. HUMALOG [Suspect]
     Active Substance: INSULIN LISPRO
     Indication: Type 2 diabetes mellitus
     Dosage: INSULIN LISPRO 100UNITS/ML SOLUTION FOR INJECTION 3ML PRE-FILLED DISPOSABLE DEVICES
  4. LYUMJEV [Suspect]
     Active Substance: INSULIN LISPRO-AABC
     Indication: Type 2 diabetes mellitus
     Dosage: INSULIN LISPRO 100UNITS/ML SOLUTION FOR INJECTION 3ML PRE-FILLED DISPOSABLE DEVICES
  5. LANTUS [Concomitant]
     Active Substance: INSULIN GLARGINE
     Indication: Type 2 diabetes mellitus
     Dosage: 3 ML
     Dates: start: 2021
  6. EZETIMIBE [Concomitant]
     Active Substance: EZETIMIBE
     Indication: Product used for unknown indication
     Dosage: 10 MG
  7. SEMAGLUTIDE [Concomitant]
     Active Substance: SEMAGLUTIDE
     Indication: Type 2 diabetes mellitus
     Dosage: 3 MG
  8. CLOPIDOGREL [Concomitant]
     Active Substance: CLOPIDOGREL BISULFATE
     Indication: Product used for unknown indication
     Dosage: 75 MG
  9. SOLIFENACIN [Concomitant]
     Active Substance: SOLIFENACIN
     Indication: Product used for unknown indication
     Dosage: 5 MG
  10. GLICLAZIDE [Concomitant]
     Active Substance: GLICLAZIDE
     Indication: Product used for unknown indication
     Dosage: UNK

REACTIONS (7)
  - Angioedema [Recovered/Resolved]
  - Urticaria [Recovered/Resolved]
  - Blister [Unknown]
  - Pruritus [Unknown]
  - Lip swelling [Unknown]
  - Swollen tongue [Unknown]
  - Eye swelling [Unknown]
